FAERS Safety Report 4588141-X (Version None)
Quarter: 2005Q1

REPORT INFORMATION
  Report Type: 
  Country: None (occurrence: None)
  Receive Date: 20050221
  Receipt Date: 20050208
  Transmission Date: 20050727
  Serious: Yes (Death, Life-Threatening, Hospitalization)
  Sender: FDA-Public Use
  Company Number: PHBS2005TR02173

PATIENT
  Age: 2 Year
  Sex: Female

DRUGS (3)
  1. CYCLOSPORINE [Suspect]
     Indication: BONE MARROW TRANSPLANT
     Route: 065
  2. FLUDARABINE PHOSPHATE [Concomitant]
  3. ATGAM [Concomitant]

REACTIONS (7)
  - BENIGN INTRACRANIAL HYPERTENSION [None]
  - CATHETER RELATED INFECTION [None]
  - CEREBRAL VENTRICLE DILATATION [None]
  - ENCEPHALITIS [None]
  - GRAFT VERSUS HOST DISEASE [None]
  - MULTI-ORGAN FAILURE [None]
  - VITH NERVE PARALYSIS [None]
